FAERS Safety Report 25520475 (Version 1)
Quarter: 2025Q3

REPORT INFORMATION
  Report Type: Spontaneous
  Country: US (occurrence: US)
  Receive Date: 20250704
  Receipt Date: 20250704
  Transmission Date: 20251021
  Serious: No
  Sender: SANOFI AVENTIS
  Company Number: US-SANOFI-02575667

PATIENT
  Age: 65 Year
  Sex: Female

DRUGS (4)
  1. LANTUS SOLOSTAR [Suspect]
     Active Substance: INSULIN GLARGINE
     Indication: Type 2 diabetes mellitus
     Dosage: 40 DF, QD
     Route: 065
     Dates: start: 2024
  2. LEVEMIR [Concomitant]
     Active Substance: INSULIN DETEMIR
  3. BASAGLAR [Concomitant]
     Active Substance: INSULIN GLARGINE
  4. TRESIBA [Concomitant]
     Active Substance: INSULIN DEGLUDEC

REACTIONS (2)
  - Cardiac valve disease [Unknown]
  - Asthenia [Unknown]
